FAERS Safety Report 9684016 (Version 2)
Quarter: 2013Q4

REPORT INFORMATION
  Report Type: Spontaneous
  Country: IT (occurrence: IT)
  Receive Date: 20131112
  Receipt Date: 20131226
  Transmission Date: 20140711
  Serious: Yes (Other)
  Sender: FDA-Public Use
  Company Number: IT-PFIZER INC-2013321657

PATIENT
  Age: 69 Year
  Sex: Female

DRUGS (6)
  1. MEDROL [Suspect]
     Dosage: 1 DF, 1X/DAY
     Route: 048
     Dates: start: 20131025, end: 20131102
  2. CARDIRENE [Suspect]
     Dosage: 1 DF, 1X/DAY
     Route: 048
     Dates: start: 20100101, end: 20131102
  3. PANTOPRAZOLE SODIUM [Concomitant]
     Dosage: UNK
  4. SIMVASTATIN [Concomitant]
     Dosage: UNK
  5. PLAQUENIL [Concomitant]
     Dosage: UNK
  6. TRIATEC [Concomitant]
     Dosage: UNK

REACTIONS (1)
  - Conjunctival haemorrhage [Recovering/Resolving]
